FAERS Safety Report 7559264-8 (Version None)
Quarter: 2011Q2

REPORT INFORMATION
  Report Type: 
  Country: None (occurrence: None)
  Receive Date: 20110617
  Receipt Date: 20110617
  Transmission Date: 20111010
  Serious: No
  Sender: FDA-Public Use
  Company Number: None

PATIENT
  Age: 43 Year
  Sex: Female

DRUGS (1)
  1. RANITIDINE [Suspect]
     Dates: start: 20100118, end: 20100129

REACTIONS (4)
  - HEPATIC STEATOSIS [None]
  - LIVER INJURY [None]
  - HEPATOTOXICITY [None]
  - FUNGAL INFECTION [None]
